FAERS Safety Report 5241091-8 (Version None)
Quarter: 2007Q1

REPORT INFORMATION
  Report Type: 
  Country: None (occurrence: None)
  Receive Date: 20070214
  Receipt Date: 20070214
  Transmission Date: 20070707
  Serious: Yes (Other)
  Sender: FDA-Public Use
  Company Number: None

PATIENT
  Age: 35 Year
  Sex: Male
  Weight: 83.0083 kg

DRUGS (1)
  1. GLYCOPYRROLATE  2MG KALI [Suspect]
     Indication: HYPERHIDROSIS
     Dosage: ONE TABLET BY MOUTH EVERY DAY
     Route: 048
     Dates: start: 20040101, end: 20070101

REACTIONS (2)
  - DRUG INEFFECTIVE [None]
  - PHARMACEUTICAL PRODUCT COMPLAINT [None]
